FAERS Safety Report 14786314 (Version 1)
Quarter: 2018Q2

REPORT INFORMATION
  Report Type: Spontaneous
  Country: US (occurrence: US)
  Receive Date: 20180420
  Receipt Date: 20180420
  Transmission Date: 20180711
  Serious: Yes (Other)
  Sender: FDA-Public Use
  Company Number: US-TEVA-2018-US-881522

PATIENT
  Sex: Male

DRUGS (1)
  1. METRONIDAZOLE. [Suspect]
     Active Substance: METRONIDAZOLE
     Indication: DIVERTICULITIS
     Dates: start: 20180404, end: 20180407

REACTIONS (3)
  - Nightmare [Unknown]
  - Acute psychosis [Unknown]
  - Anxiety [Unknown]

NARRATIVE: CASE EVENT DATE: 20180407
